FAERS Safety Report 18847083 (Version 1)
Quarter: 2021Q1

REPORT INFORMATION
  Report Type: Report from Study
  Country: US (occurrence: US)
  Receive Date: 20210203
  Receipt Date: 20210203
  Transmission Date: 20210419
  Serious: No
  Sender: FDA-Public Use
  Company Number: US-EXELIXIS-CABO-20033457

PATIENT
  Age: 74 Year
  Sex: Male

DRUGS (5)
  1. OPDIVO [Concomitant]
     Active Substance: NIVOLUMAB
  2. PREDNISONE. [Concomitant]
     Active Substance: PREDNISONE
  3. SUTENT [Concomitant]
     Active Substance: SUNITINIB MALATE
  4. HYDROCORTISONE BUTYRATE. [Concomitant]
     Active Substance: HYDROCORTISONE BUTYRATE
  5. CABOMETYX [Suspect]
     Active Substance: CABOZANTINIB S-MALATE
     Indication: RENAL CANCER
     Dosage: 60 MG, QD
     Route: 048
     Dates: start: 20200903

REACTIONS (6)
  - Decreased appetite [Unknown]
  - Gingival discomfort [Unknown]
  - Nausea [Not Recovered/Not Resolved]
  - Vomiting [Not Recovered/Not Resolved]
  - Oral pain [Recovering/Resolving]
  - Weight decreased [Unknown]

NARRATIVE: CASE EVENT DATE: 202009
